FAERS Safety Report 4422070-7 (Version None)
Quarter: 2004Q3

REPORT INFORMATION
  Report Type: 
  Country: None (occurrence: None)
  Receive Date: 20040809
  Receipt Date: 20040809
  Transmission Date: 20050211
  Serious: Yes (Other)
  Sender: FDA-Public Use
  Company Number: None

PATIENT
  Age: 33 Year
  Sex: Female
  Weight: 49.8957 kg

DRUGS (4)
  1. TYLENOL COLD  DAY NON-DROWSY MCNEIL [Suspect]
     Indication: COUGH
     Dosage: 2 CAPLET
     Dates: start: 20040531, end: 20040531
  2. TYLENOL COLD  DAY NON-DROWSY MCNEIL [Suspect]
     Indication: HEADACHE
     Dosage: 2 CAPLET
     Dates: start: 20040531, end: 20040531
  3. TYLENOL COLD  DAY NON-DROWSY MCNEIL [Suspect]
     Indication: NASAL CONGESTION
     Dosage: 2 CAPLET
     Dates: start: 20040531, end: 20040531
  4. TYLENOL COLD  DAY NON-DROWSY MCNEIL [Suspect]
     Indication: PHARYNGOLARYNGEAL PAIN
     Dosage: 2 CAPLET
     Dates: start: 20040531, end: 20040531

REACTIONS (4)
  - DIZZINESS [None]
  - FEAR [None]
  - HALLUCINATION [None]
  - HYPERHIDROSIS [None]
